FAERS Safety Report 16724831 (Version 1)
Quarter: 2019Q3

REPORT INFORMATION
  Report Type: Spontaneous
  Country: US (occurrence: US)
  Receive Date: 20190705
  Receipt Date: 20190705
  Transmission Date: 20191005
  Serious: No
  Sender: FDA-Public Use
  Company Number: None

PATIENT
  Age: 8 Month
  Sex: Female

DRUGS (1)
  1. SIROLIMUS 1MG/ML SOL (X60ML) [Suspect]
     Active Substance: SIROLIMUS
     Indication: NEOPLASM
     Route: 048
     Dates: start: 201906

REACTIONS (2)
  - Device use error [None]
  - Incorrect dose administered [None]

NARRATIVE: CASE EVENT DATE: 20190628
